FAERS Safety Report 5336971-9 (Version None)
Quarter: 2007Q2

REPORT INFORMATION
  Report Type: 
  Country: None (occurrence: None)
  Receive Date: 20070529
  Receipt Date: 20070516
  Transmission Date: 20071010
  Serious: Yes (Other)
  Sender: FDA-Public Use
  Company Number: LB-MERCK-0705USA03798

PATIENT
  Age: 55 Year
  Sex: Female

DRUGS (2)
  1. PRIMAXIN [Suspect]
     Route: 042
  2. SPASFON [Concomitant]
     Route: 065

REACTIONS (2)
  - DRUG HYPERSENSITIVITY [None]
  - RASH [None]
